FAERS Safety Report 8225312-5 (Version None)
Quarter: 2012Q1

REPORT INFORMATION
  Report Type: 
  Country: None (occurrence: None)
  Receive Date: 20120321
  Receipt Date: 20120313
  Transmission Date: 20120608
  Serious: Yes (Other)
  Sender: FDA-Public Use
  Company Number: US-GLAXOSMITHKLINE-A0944480A

PATIENT
  Age: 54 Year
  Sex: Male
  Weight: 90 kg

DRUGS (1)
  1. VOTRIENT [Suspect]
     Indication: RENAL CANCER
     Dosage: 800MG PER DAY
     Route: 065
     Dates: start: 20110901, end: 20120306

REACTIONS (5)
  - NAUSEA [None]
  - CONSTIPATION [None]
  - STOMATITIS [None]
  - PANCREATITIS [None]
  - HAIR COLOUR CHANGES [None]
